FAERS Safety Report 21180040 (Version 1)
Quarter: 2022Q3

REPORT INFORMATION
  Report Type: Spontaneous
  Country: US (occurrence: None)
  Receive Date: 20220805
  Receipt Date: 20220805
  Transmission Date: 20221026
  Serious: No
  Sender: FDA-Public Use
  Company Number: None

PATIENT
  Age: 64 Year
  Sex: Male
  Weight: 108 kg

DRUGS (2)
  1. VANCOMYCIN [Suspect]
     Active Substance: VANCOMYCIN
     Indication: COVID-19 pneumonia
     Dosage: OTHER STRENGTH : 1.5GM/VIL;?
     Dates: start: 20220102, end: 20220115
  2. CEFEPIME HYDROCHLORIDE [Suspect]
     Active Substance: CEFEPIME HYDROCHLORIDE
     Dosage: OTHER STRENGTH : 2GM/VIL;?
     Dates: start: 20220102, end: 20220115

REACTIONS (6)
  - Acute respiratory failure [None]
  - Streptococcal bacteraemia [None]
  - Rash maculo-papular [None]
  - Rash erythematous [None]
  - Eosinophilia [None]
  - Infusion related reaction [None]

NARRATIVE: CASE EVENT DATE: 20220115
